FAERS Safety Report 6091714-9 (Version None)
Quarter: 2009Q1

REPORT INFORMATION
  Report Type: 
  Country: None (occurrence: None)
  Receive Date: 20090225
  Receipt Date: 20080423
  Transmission Date: 20090719
  Serious: Yes (Other)
  Sender: FDA-Public Use
  Company Number: A0724346A

PATIENT
  Age: 47 Year
  Sex: Female

DRUGS (2)
  1. VALTREX [Suspect]
     Indication: GENITAL HERPES
     Dosage: 500MG UNKNOWN
     Route: 048
     Dates: start: 20070401, end: 20080410
  2. NO CONCURRENT MEDICATION [Concomitant]

REACTIONS (1)
  - LEUKOPENIA [None]
